FAERS Safety Report 9060224 (Version 5)
Quarter: 2013Q4

REPORT INFORMATION
  Report Type: Spontaneous
  Country: US (occurrence: US)
  Receive Date: 20130212
  Receipt Date: 20131223
  Transmission Date: 20140711
  Serious: Yes (Disabling, Other)
  Sender: FDA-Public Use
  Company Number: US-PURDUE-USA-2013-0098556

PATIENT
  Age: 38 Year
  Sex: Female
  Weight: 69.39 kg

DRUGS (21)
  1. MS CONTIN TABLETS [Suspect]
     Indication: PAIN
     Dosage: 100 MG, TID
     Route: 048
     Dates: start: 2005, end: 20120915
  2. MS CONTIN TABLETS [Suspect]
     Dosage: UNK
     Route: 048
     Dates: end: 20040923
  3. MS CONTIN TABLETS [Suspect]
     Dosage: 20 UNK, UNK
     Route: 048
     Dates: start: 20041208
  4. MS CONTIN TABLETS [Suspect]
     Dosage: 30 UNK, UNK
     Route: 048
     Dates: start: 20041220
  5. MS CONTIN TABLETS [Suspect]
     Dosage: 60 UNK, UNK
     Route: 065
     Dates: start: 20050323
  6. MS CONTIN TABLETS [Suspect]
     Dosage: 100 UNK, UNK
     Route: 048
     Dates: start: 20051228
  7. MS CONTIN TABLETS [Suspect]
     Dosage: 100 MG, Q8H
     Route: 048
     Dates: start: 20060814
  8. FENTANYL [Suspect]
     Indication: PRODUCT USED FOR UNKNOWN INDICATION
     Dosage: 100 MG, UNK
     Route: 062
  9. FENTANYL [Suspect]
     Dosage: 25 MCG/HR, UNK
     Route: 062
     Dates: start: 20040923
  10. FENTANYL [Suspect]
     Dosage: 100 MCG/HR, UNK
     Route: 062
     Dates: start: 20041229
  11. DARVOCET                           /00220901/ [Concomitant]
     Indication: PRODUCT USED FOR UNKNOWN INDICATION
     Dosage: 2 TABLET, DAILY
     Route: 048
  12. DARVOCET                           /00220901/ [Concomitant]
     Dosage: UNK
     Dates: end: 20060814
  13. VICODIN [Concomitant]
     Indication: PAIN
     Dosage: UNK, Q4H
     Route: 048
  14. CELEBREX [Concomitant]
     Indication: PRODUCT USED FOR UNKNOWN INDICATION
     Dosage: 20 MG, UNK
  15. ELAVIL                             /00002202/ [Concomitant]
     Indication: PRODUCT USED FOR UNKNOWN INDICATION
     Dosage: 10 MG, UNK
  16. LIDODERM [Concomitant]
     Indication: PRODUCT USED FOR UNKNOWN INDICATION
  17. DURAGESIC                          /00070401/ [Concomitant]
     Indication: PRODUCT USED FOR UNKNOWN INDICATION
     Dosage: 100 MCG, UNK
  18. DICLOFEN                           /00372302/ [Concomitant]
     Indication: PRODUCT USED FOR UNKNOWN INDICATION
     Dosage: 75 MG, UNK
  19. NORCO [Concomitant]
     Indication: PRODUCT USED FOR UNKNOWN INDICATION
     Dosage: 10/325MG
  20. HYDROXYZINE [Concomitant]
     Indication: PRODUCT USED FOR UNKNOWN INDICATION
     Dosage: 10 MG, UNK
  21. CYMBALTA [Concomitant]
     Indication: PRODUCT USED FOR UNKNOWN INDICATION

REACTIONS (26)
  - Tooth fracture [Unknown]
  - Tooth loss [Unknown]
  - Tooth infection [Unknown]
  - Tooth discolouration [Unknown]
  - Gingival discolouration [Unknown]
  - Dental caries [Unknown]
  - Personality disorder [Unknown]
  - Psychiatric symptom [Unknown]
  - Dry mouth [Unknown]
  - Toothache [Unknown]
  - Eye infection [Unknown]
  - Major depression [Unknown]
  - Drug effect increased [Unknown]
  - Pain [Unknown]
  - Musculoskeletal stiffness [Unknown]
  - Urinary incontinence [Unknown]
  - Functional gastrointestinal disorder [Unknown]
  - Affective disorder [Unknown]
  - Neck pain [Unknown]
  - Back pain [Unknown]
  - Back pain [Unknown]
  - Arthralgia [Unknown]
  - Pain in extremity [Unknown]
  - Anxiety [Unknown]
  - Depression [Unknown]
  - Obesity [Unknown]
